FAERS Safety Report 9690593 (Version 1)
Quarter: 2013Q4

REPORT INFORMATION
  Report Type: Spontaneous
  Country: JP (occurrence: None)
  Receive Date: 20131113
  Receipt Date: 20131113
  Transmission Date: 20140711
  Serious: No
  Sender: FDA-Public Use
  Company Number: HYDR20130016

PATIENT
  Age: 45 Year
  Sex: Female

DRUGS (1)
  1. HYDROCORTISONE [Suspect]
     Indication: HORMONE REPLACEMENT THERAPY
     Dosage: 30MG, 1 IN 1 D
     Dates: start: 201101, end: 2011

REACTIONS (4)
  - Fatigue [None]
  - Adrenal insufficiency [None]
  - Hyperthyroidism [None]
  - Blood thyroid stimulating hormone increased [None]
